FAERS Safety Report 7224871-9 (Version None)
Quarter: 2011Q1

REPORT INFORMATION
  Report Type: 
  Country: None (occurrence: None)
  Receive Date: 20110113
  Receipt Date: 20110104
  Transmission Date: 20110831
  Serious: Yes (Other)
  Sender: FDA-Public Use
  Company Number: US-ROCHE-719000

PATIENT
  Sex: Male
  Weight: 122.5 kg

DRUGS (1)
  1. ACCUTANE [Suspect]
     Indication: ACNE
     Dosage: TAKEN FOR A FEW MONTHS; STRENGTH: 40 MG AND 10 MG
     Route: 048
     Dates: start: 20010517

REACTIONS (16)
  - RECTAL HAEMORRHAGE [None]
  - BRONCHITIS [None]
  - CROHN'S DISEASE [None]
  - COLITIS ULCERATIVE [None]
  - HYPOTENSION [None]
  - DEHYDRATION [None]
  - IRRITABLE BOWEL SYNDROME [None]
  - GASTROINTESTINAL INJURY [None]
  - DRUG HYPERSENSITIVITY [None]
  - DYSPEPSIA [None]
  - IRRITABILITY [None]
  - SUICIDAL IDEATION [None]
  - DEATH OF RELATIVE [None]
  - DEPRESSION [None]
  - ANXIETY [None]
  - HOMICIDAL IDEATION [None]
